FAERS Safety Report 6536969-9 (Version None)
Quarter: 2010Q1

REPORT INFORMATION
  Report Type: 
  Country: None (occurrence: None)
  Receive Date: 20100107
  Receipt Date: 20081217
  Transmission Date: 20100710
  Serious: Yes (Other)
  Sender: FDA-Public Use
  Company Number: 2008AP003626

PATIENT
  Age: 16 Year
  Sex: Male

DRUGS (3)
  1. ALBUTEROL SULFATE [Suspect]
     Indication: ASTHMA
     Dosage: 7.5 MG;QH;NAS ; 2.5 MG;QH;NAS
     Route: 045
  2. KETAMINE HCL [Concomitant]
  3. MAGNESIUM SULFATE [Concomitant]

REACTIONS (6)
  - COMA [None]
  - DYSPNOEA [None]
  - HYPERVENTILATION [None]
  - LACTIC ACIDOSIS [None]
  - TACHYCARDIA [None]
  - TREATMENT NONCOMPLIANCE [None]
